FAERS Safety Report 4315701-3 (Version None)
Quarter: 2004Q1

REPORT INFORMATION
  Report Type: 
  Country: None (occurrence: None)
  Receive Date: 20040309
  Receipt Date: 20040220
  Transmission Date: 20041129
  Serious: No
  Sender: FDA-Public Use
  Company Number: US-SHR-04-020463

PATIENT
  Age: 32 Year
  Sex: Male

DRUGS (6)
  1. BETASERON [Suspect]
     Indication: MULTIPLE SCLEROSIS
     Dosage: 8 MIU, EVERY 2 D, SUBCUTANEOUS
     Route: 058
     Dates: start: 20030625
  2. ULTRACET [Concomitant]
  3. ZYPREXA [Concomitant]
  4. AMBIEN [Concomitant]
  5. VIAGRA /SWE/(SILDENAFIL CITRATE) [Concomitant]
  6. DILANTIN [Concomitant]

REACTIONS (1)
  - NO ADVERSE DRUG EFFECT [None]
